FAERS Safety Report 13099246 (Version 10)
Quarter: 2018Q1

REPORT INFORMATION
  Report Type: Spontaneous
  Country: US (occurrence: US)
  Receive Date: 20170109
  Receipt Date: 20180116
  Transmission Date: 20180508
  Serious: Yes (Death, Hospitalization)
  Sender: FDA-Public Use
  Company Number: US-ACTELION-A-US2017-147873

PATIENT
  Age: 72 Year
  Sex: Male
  Weight: 68.93 kg

DRUGS (3)
  1. OPSUMIT [Suspect]
     Active Substance: MACITENTAN
     Indication: PULMONARY ARTERIAL HYPERTENSION
     Dosage: 10 MG, QD
     Route: 048
     Dates: start: 20170126
  2. VELETRI [Suspect]
     Active Substance: EPOPROSTENOL
     Dosage: 25 NG/KG, PER MIN
     Route: 042
  3. VELETRI [Suspect]
     Active Substance: EPOPROSTENOL
     Indication: PULMONARY ARTERIAL HYPERTENSION
     Dosage: 20 NG/KG, PER MIN
     Route: 042
     Dates: start: 20161114

REACTIONS (13)
  - Thrombosis [Unknown]
  - Dizziness [Unknown]
  - Malaise [Unknown]
  - Right ventricular failure [Unknown]
  - Diarrhoea [Unknown]
  - Fluid overload [Unknown]
  - Death [Fatal]
  - Dialysis [Unknown]
  - Hypotension [Unknown]
  - Agitation [Unknown]
  - Confusional state [Unknown]
  - Fluid retention [Unknown]
  - Heart rate increased [Unknown]

NARRATIVE: CASE EVENT DATE: 20170118
